FAERS Safety Report 9116935 (Version 4)
Quarter: 2013Q2

REPORT INFORMATION
  Report Type: Report from Study
  Country: DE (occurrence: DE)
  Receive Date: 20130225
  Receipt Date: 20130404
  Transmission Date: 20140414
  Serious: Yes (Life-Threatening, Hospitalization)
  Sender: FDA-Public Use
  Company Number: DE-AMGEN-DEUCT2013012574

PATIENT
  Age: 49 Year
  Sex: Female
  Weight: 64 kg

DRUGS (5)
  1. PANITUMUMAB [Suspect]
     Indication: OVARIAN CANCER
     Dosage: 9 MG/KG, UNK
     Route: 042
     Dates: start: 20121212
  2. GEMCITABINE [Concomitant]
     Indication: OVARIAN CANCER
     Dosage: 750 MG/M2, UNK
     Route: 042
     Dates: start: 20121212
  3. CARBOPLATIN [Concomitant]
     Indication: OVARIAN CANCER
     Dosage: 387.06 MG, UNK
     Route: 042
     Dates: start: 20110930
  4. L-THYROXIN [Concomitant]
     Indication: HYPOTHYROIDISM
     Dosage: 100 MUG, UNK
     Route: 048
  5. BEROTEC [Concomitant]
     Indication: ASTHMA
     Dosage: UNK

REACTIONS (1)
  - Pulmonary embolism [Recovered/Resolved]
